FAERS Safety Report 22972542 (Version 2)
Quarter: 2023Q4

REPORT INFORMATION
  Report Type: Spontaneous
  Country: US (occurrence: US)
  Receive Date: 20230922
  Receipt Date: 20231009
  Transmission Date: 20240109
  Serious: Yes (Life-Threatening, Hospitalization, Other)
  Sender: FDA-Public Use
  Company Number: US-Accord-379911

PATIENT
  Age: 69 Year
  Sex: Female
  Weight: 49.9 kg

DRUGS (5)
  1. AMLODIPINE [Suspect]
     Active Substance: AMLODIPINE BESYLATE
     Dosage: UNKNOWN AMOUNTS
  2. APIXABAN [Suspect]
     Active Substance: APIXABAN
  3. ATORVASTATIN [Suspect]
     Active Substance: ATORVASTATIN
  4. CARVEDILOL [Suspect]
     Active Substance: CARVEDILOL
  5. ALCOHOL [Suspect]
     Active Substance: ALCOHOL
     Dosage: UNKNOWN AMOUNTS

REACTIONS (5)
  - Subarachnoid haemorrhage [Recovered/Resolved]
  - Subdural haematoma [Recovered/Resolved]
  - Brain herniation [Recovered/Resolved]
  - Intentional overdose [Unknown]
  - Extradural haematoma [Recovered/Resolved]
